FAERS Safety Report 9089302 (Version 1)
Quarter: 2013Q1

REPORT INFORMATION
  Report Type: Spontaneous
  Country: JP (occurrence: JP)
  Receive Date: 20130201
  Receipt Date: 20130201
  Transmission Date: 20140127
  Serious: Yes (Other)
  Sender: FDA-Public Use
  Company Number: JP-009507513-1301JPN014162

PATIENT
  Sex: 0

DRUGS (1)
  1. GASTER [Suspect]
     Dosage: 20 MG DAILY
     Route: 048

REACTIONS (2)
  - Urinary retention [Unknown]
  - Urine abnormality [Unknown]
